FAERS Safety Report 8367586-6 (Version None)
Quarter: 2012Q2

REPORT INFORMATION
  Report Type: 
  Country: None (occurrence: None)
  Receive Date: 20120517
  Receipt Date: 20120509
  Transmission Date: 20120825
  Serious: Yes (Other)
  Sender: FDA-Public Use
  Company Number: DE-PFIZER INC-2012095172

PATIENT
  Age: 70 Year
  Sex: Male

DRUGS (6)
  1. RAMIPRIL [Suspect]
     Indication: BLOOD PRESSURE INCREASED
     Dosage: 1.25MG,DAILY
     Route: 048
     Dates: start: 20100320, end: 20120320
  2. RAMIPRIL [Suspect]
     Dosage: UNK
     Route: 048
     Dates: start: 20120322, end: 20120322
  3. RAMIPRIL [Suspect]
     Dosage: 5 MG, DAILY
     Route: 048
     Dates: start: 20120323, end: 20120331
  4. ACETYLSALICYLIC ACID [Concomitant]
     Dosage: UNK
     Dates: start: 20120311
  5. RAMIPRIL [Suspect]
     Dosage: UNK
     Route: 048
     Dates: start: 20120413
  6. RAMIPRIL [Suspect]
     Dosage: UNK
     Route: 048
     Dates: start: 20120401, end: 20120412

REACTIONS (2)
  - BLOOD PRESSURE FLUCTUATION [None]
  - BLOOD PRESSURE INCREASED [None]
